FAERS Safety Report 18186681 (Version 1)
Quarter: 2020Q3

REPORT INFORMATION
  Report Type: Spontaneous
  Country: US (occurrence: US)
  Receive Date: 20200824
  Receipt Date: 20200824
  Transmission Date: 20201103
  Serious: No
  Sender: FDA-Public Use
  Company Number: US-PFIZER INC-2020324625

PATIENT
  Sex: Male

DRUGS (3)
  1. XANAX [Suspect]
     Active Substance: ALPRAZOLAM
     Indication: PANIC ATTACK
  2. XANAX [Suspect]
     Active Substance: ALPRAZOLAM
     Indication: CHEST DISCOMFORT
     Dosage: UNK (HALF OF ONE SOMETIMES/TO TAKE UP TO 4 TIMES A DAY), AS NEEDED
  3. XANAX [Suspect]
     Active Substance: ALPRAZOLAM
     Indication: ANXIETY

REACTIONS (1)
  - Therapeutic product effect incomplete [Unknown]
